FAERS Safety Report 24330298 (Version 1)
Quarter: 2024Q3

REPORT INFORMATION
  Report Type: Report from Study
  Country: CA (occurrence: CA)
  Receive Date: 20240918
  Receipt Date: 20240918
  Transmission Date: 20241017
  Serious: Yes (Other)
  Sender: JOHNSON AND JOHNSON
  Company Number: CA-JNJFOC-20240734236

PATIENT
  Age: 17 Year
  Sex: Female

DRUGS (3)
  1. REMICADE [Suspect]
     Active Substance: INFLIXIMAB
     Indication: Crohn^s disease
     Dosage: START DATE ALSO REPORTED AS 29-AUG-2023
     Route: 041
     Dates: start: 20230815
  2. REMICADE [Suspect]
     Active Substance: INFLIXIMAB
     Route: 041
  3. CIPRO [Suspect]
     Active Substance: CIPROFLOXACIN HYDROCHLORIDE
     Indication: Anal abscess
     Route: 065

REACTIONS (7)
  - Anal abscess [Not Recovered/Not Resolved]
  - Blood iron decreased [Unknown]
  - General physical health deterioration [Not Recovered/Not Resolved]
  - Abdominal pain [Not Recovered/Not Resolved]
  - Affective disorder [Unknown]
  - Sleep disorder [Unknown]
  - Off label use [Unknown]

NARRATIVE: CASE EVENT DATE: 20230815
